FAERS Safety Report 25970500 (Version 2)
Quarter: 2025Q4

REPORT INFORMATION
  Report Type: Spontaneous
  Country: EU (occurrence: EU)
  Receive Date: 20251028
  Receipt Date: 20251111
  Transmission Date: 20260118
  Serious: Yes (Other)
  Sender: TAKEDA
  Company Number: EU-SANDOZ-SDZ2025PL073915

PATIENT
  Age: 79 Year
  Sex: Female

DRUGS (8)
  1. MESALAMINE [Suspect]
     Active Substance: MESALAMINE
     Indication: Chronic myeloid leukaemia
     Dosage: 500 MILLIGRAM
  2. ESCITALOPRAM [Suspect]
     Active Substance: ESCITALOPRAM OXALATE
     Indication: Chronic myeloid leukaemia
     Dosage: 10 MILLIGRAM, QD
  3. ASCIMINIB [Suspect]
     Active Substance: ASCIMINIB
     Indication: Chronic myeloid leukaemia
     Dosage: 40 MILLIGRAM
  4. APIXABAN [Suspect]
     Active Substance: APIXABAN
     Indication: Chronic myeloid leukaemia
     Dosage: 5 MILLIGRAM
  5. METOPROLOL [Suspect]
     Active Substance: METOPROLOL
     Indication: Chronic myeloid leukaemia
     Dosage: 25 MILLIGRAM
  6. BUDESONIDE [Suspect]
     Active Substance: BUDESONIDE
     Indication: Chronic myeloid leukaemia
     Dosage: 3 MILLIGRAM
  7. PERINDOPRIL [Suspect]
     Active Substance: PERINDOPRIL
     Indication: Chronic myeloid leukaemia
     Dosage: 5 MILLIGRAM
  8. DONEPEZIL [Suspect]
     Active Substance: DONEPEZIL
     Indication: Chronic myeloid leukaemia
     Dosage: 5 MILLIGRAM, QD

REACTIONS (4)
  - Dementia [Unknown]
  - Pulmonary embolism [Unknown]
  - Pleural effusion [Unknown]
  - Depressive symptom [Unknown]
